FAERS Safety Report 25452275 (Version 2)
Quarter: 2025Q2

REPORT INFORMATION
  Report Type: Spontaneous
  Country: DE (occurrence: DE)
  Receive Date: 20250618
  Receipt Date: 20250623
  Transmission Date: 20250717
  Serious: Yes (Hospitalization, Other)
  Sender: MYLAN
  Company Number: DE-SANDOZ-SDZ2025DE038987

PATIENT
  Age: 61 Year
  Sex: Female

DRUGS (36)
  1. CELECOXIB [Suspect]
     Active Substance: CELECOXIB
     Indication: Psoriatic arthropathy
     Dates: start: 20230216, end: 20230926
  2. CELECOXIB [Suspect]
     Active Substance: CELECOXIB
     Route: 065
     Dates: start: 20230216, end: 20230926
  3. CELECOXIB [Suspect]
     Active Substance: CELECOXIB
     Route: 065
     Dates: start: 20230216, end: 20230926
  4. CELECOXIB [Suspect]
     Active Substance: CELECOXIB
     Dates: start: 20230216, end: 20230926
  5. METHOTREXATE [Suspect]
     Active Substance: METHOTREXATE
     Indication: Psoriatic arthropathy
     Dates: start: 20230617, end: 20240306
  6. METHOTREXATE [Suspect]
     Active Substance: METHOTREXATE
     Route: 065
     Dates: start: 20230617, end: 20240306
  7. METHOTREXATE [Suspect]
     Active Substance: METHOTREXATE
     Route: 065
     Dates: start: 20230617, end: 20240306
  8. METHOTREXATE [Suspect]
     Active Substance: METHOTREXATE
     Dates: start: 20230617, end: 20240306
  9. ETORICOXIB [Suspect]
     Active Substance: ETORICOXIB
     Indication: Psoriatic arthropathy
     Dates: start: 20211008, end: 20221116
  10. ETORICOXIB [Suspect]
     Active Substance: ETORICOXIB
     Route: 065
     Dates: start: 20211008, end: 20221116
  11. ETORICOXIB [Suspect]
     Active Substance: ETORICOXIB
     Route: 065
     Dates: start: 20211008, end: 20221116
  12. ETORICOXIB [Suspect]
     Active Substance: ETORICOXIB
     Dates: start: 20211008, end: 20221116
  13. HYRIMOZ [Suspect]
     Active Substance: ADALIMUMAB-ADAZ
     Indication: Psoriatic arthropathy
     Dates: start: 20220428, end: 20220809
  14. HYRIMOZ [Suspect]
     Active Substance: ADALIMUMAB-ADAZ
     Route: 065
     Dates: start: 20220428, end: 20220809
  15. HYRIMOZ [Suspect]
     Active Substance: ADALIMUMAB-ADAZ
     Route: 065
     Dates: start: 20220428, end: 20220809
  16. HYRIMOZ [Suspect]
     Active Substance: ADALIMUMAB-ADAZ
     Dates: start: 20220428, end: 20220809
  17. IBUPROFEN [Suspect]
     Active Substance: IBUPROFEN
     Indication: Psoriatic arthropathy
     Dates: start: 20221117, end: 20230215
  18. IBUPROFEN [Suspect]
     Active Substance: IBUPROFEN
     Dates: start: 20221117, end: 20230215
  19. IBUPROFEN [Suspect]
     Active Substance: IBUPROFEN
     Route: 065
     Dates: start: 20221117, end: 20230215
  20. IBUPROFEN [Suspect]
     Active Substance: IBUPROFEN
     Route: 065
     Dates: start: 20221117, end: 20230215
  21. IBUPROFEN [Suspect]
     Active Substance: IBUPROFEN
     Dates: start: 20230927, end: 20240319
  22. IBUPROFEN [Suspect]
     Active Substance: IBUPROFEN
     Dates: start: 20230927, end: 20240319
  23. IBUPROFEN [Suspect]
     Active Substance: IBUPROFEN
     Route: 065
     Dates: start: 20230927, end: 20240319
  24. IBUPROFEN [Suspect]
     Active Substance: IBUPROFEN
     Route: 065
     Dates: start: 20230927, end: 20240319
  25. COSENTYX [Suspect]
     Active Substance: SECUKINUMAB
     Indication: Psoriatic arthropathy
     Dates: start: 20220810, end: 20230215
  26. COSENTYX [Suspect]
     Active Substance: SECUKINUMAB
     Indication: Axial spondyloarthritis
     Route: 065
     Dates: start: 20220810, end: 20230215
  27. COSENTYX [Suspect]
     Active Substance: SECUKINUMAB
     Route: 065
     Dates: start: 20220810, end: 20230215
  28. COSENTYX [Suspect]
     Active Substance: SECUKINUMAB
     Dates: start: 20220810, end: 20230215
  29. ETANERCEPT [Concomitant]
     Active Substance: ETANERCEPT
     Indication: Psoriatic arthropathy
     Dates: start: 20211015, end: 20220428
  30. ETANERCEPT [Concomitant]
     Active Substance: ETANERCEPT
     Route: 065
     Dates: start: 20211015, end: 20220428
  31. ETANERCEPT [Concomitant]
     Active Substance: ETANERCEPT
     Route: 065
     Dates: start: 20211015, end: 20220428
  32. ETANERCEPT [Concomitant]
     Active Substance: ETANERCEPT
     Dates: start: 20211015, end: 20220428
  33. TREMFYA [Concomitant]
     Active Substance: GUSELKUMAB
     Indication: Psoriatic arthropathy
     Dates: start: 20230216, end: 20240306
  34. TREMFYA [Concomitant]
     Active Substance: GUSELKUMAB
     Route: 065
     Dates: start: 20230216, end: 20240306
  35. TREMFYA [Concomitant]
     Active Substance: GUSELKUMAB
     Route: 065
     Dates: start: 20230216, end: 20240306
  36. TREMFYA [Concomitant]
     Active Substance: GUSELKUMAB
     Dates: start: 20230216, end: 20240306

REACTIONS (3)
  - Lung adenocarcinoma stage IV [Unknown]
  - Metastases to lymph nodes [Unknown]
  - Metastases to liver [Unknown]

NARRATIVE: CASE EVENT DATE: 20231215
